FAERS Safety Report 6509552-9 (Version None)
Quarter: 2009Q4

REPORT INFORMATION
  Report Type: 
  Country: None (occurrence: None)
  Receive Date: 20091222
  Receipt Date: 20091216
  Transmission Date: 20100525
  Serious: Yes (Death, Hospitalization)
  Sender: FDA-Public Use
  Company Number: US-CELGENEUS-163-50794-09120255

PATIENT
  Sex: Male
  Weight: 70 kg

DRUGS (18)
  1. VIDAZA [Suspect]
     Route: 058
     Dates: start: 20091116, end: 20091120
  2. VIDAZA [Suspect]
     Route: 058
     Dates: start: 20090825, end: 20090828
  3. RED BLOOD CELLS [Concomitant]
     Route: 051
     Dates: start: 20091101
  4. FOLIC ACID [Concomitant]
     Indication: SUPPLEMENTATION THERAPY
     Route: 048
     Dates: start: 20090810
  5. PHENERGAN HCL [Concomitant]
     Indication: NAUSEA
     Route: 048
     Dates: start: 20090826
  6. PHENERGAN HCL [Concomitant]
     Route: 048
  7. POTASSIUM CHLORIDE [Concomitant]
     Route: 048
     Dates: start: 20091117
  8. PREDNISONE [Concomitant]
     Route: 048
  9. ALLOPURINOL [Concomitant]
     Route: 048
  10. PERCOCET [Concomitant]
     Indication: PAIN
     Dosage: 5/325
     Route: 048
  11. RESTORIL [Concomitant]
     Route: 048
  12. COLACE [Concomitant]
     Indication: CONSTIPATION
     Route: 048
  13. TYLENOL (CAPLET) [Concomitant]
     Route: 048
  14. HYDROCODONE [Concomitant]
     Indication: PAIN
     Dosage: 5/500
     Route: 065
  15. ARANESP [Concomitant]
     Route: 065
  16. MORPHINE [Concomitant]
     Indication: PAIN
     Route: 051
     Dates: start: 20091201
  17. PLATELETS [Concomitant]
     Route: 051
     Dates: start: 20091101
  18. BETABLOCKER [Concomitant]
     Indication: VENTRICULAR TACHYCARDIA
     Route: 065
     Dates: start: 20091201

REACTIONS (2)
  - DISEASE PROGRESSION [None]
  - UPPER LIMB FRACTURE [None]
